FAERS Safety Report 5746275-8 (Version None)
Quarter: 2008Q2

REPORT INFORMATION
  Report Type: 
  Country: None (occurrence: None)
  Receive Date: 20080522
  Receipt Date: 20080519
  Transmission Date: 20081010
  Serious: Yes (Other)
  Sender: FDA-Public Use
  Company Number: US-BRISTOL-MYERS SQUIBB COMPANY-14196620

PATIENT
  Age: 51 Year
  Sex: Female
  Weight: 92 kg

DRUGS (2)
  1. ERBITUX [Suspect]
     Indication: NON-SMALL CELL LUNG CANCER
     Dosage: START DATE OF FIRST COURSE: 06-JUN-2007
     Route: 042
     Dates: start: 20070606, end: 20080514
  2. BEVACIZUMAB [Suspect]
     Indication: NON-SMALL CELL LUNG CANCER
     Dosage: START DATE OF FIRST COURSE: 06-JUN-2007
     Route: 042
     Dates: start: 20070606, end: 20080507

REACTIONS (1)
  - EYE DISORDER [None]
